FAERS Safety Report 4672526-7 (Version None)
Quarter: 2005Q2

REPORT INFORMATION
  Report Type: 
  Country: None (occurrence: None)
  Receive Date: 20050524
  Receipt Date: 20050512
  Transmission Date: 20051028
  Serious: Yes (Death, Life-Threatening)
  Sender: FDA-Public Use
  Company Number: FR-BRISTOL-MYERS SQUIBB COMPANY-12972014

PATIENT
  Age: 42 Year
  Sex: Female

DRUGS (5)
  1. ENDOXAN [Suspect]
     Indication: BREAST CANCER
     Route: 042
     Dates: start: 19890101, end: 19890101
  2. METHOTREXATE [Suspect]
     Indication: BREAST CANCER
     Route: 042
     Dates: start: 19890101, end: 19890101
  3. ADRIBLASTIN [Suspect]
     Indication: BREAST CANCER
     Route: 042
     Dates: start: 19890101, end: 19890101
  4. FLUOROURACIL [Suspect]
     Indication: BREAST CANCER
     Route: 042
     Dates: start: 19890101, end: 19890101
  5. ONCOVIN [Suspect]
     Indication: BREAST CANCER
     Route: 042
     Dates: start: 19890101, end: 19890101

REACTIONS (6)
  - FOETAL MALFORMATION [None]
  - KARYOTYPE ANALYSIS ABNORMAL [None]
  - LIMB MALFORMATION [None]
  - OLIGOHYDRAMNIOS [None]
  - PREGNANCY [None]
  - TALIPES [None]
